FAERS Safety Report 7429815-2 (Version None)
Quarter: 2011Q2

REPORT INFORMATION
  Report Type: 
  Country: None (occurrence: None)
  Receive Date: 20110421
  Receipt Date: 20110412
  Transmission Date: 20111010
  Serious: Yes (Other)
  Sender: FDA-Public Use
  Company Number: IT-JNJFOC-20110406499

PATIENT
  Sex: Female

DRUGS (7)
  1. RANITIDINE [Concomitant]
     Route: 065
  2. DEXAMETHASONE [Concomitant]
     Route: 065
  3. DIPHENHYDRAMINE HCL [Concomitant]
     Route: 065
  4. 5-HT3 SEROTONIN ANTAGONIST [Concomitant]
     Indication: ANTIEMETIC SUPPORTIVE CARE
     Route: 065
  5. DOXORUBICIN HYDROCHLORIDE [Suspect]
     Indication: BREAST CANCER METASTATIC
     Dosage: 30 MINUTE INFUSION, IN 250 ML OF 5% GLUCOSE SOLUTION
     Route: 042
  6. PACLITAXEL [Suspect]
     Indication: BREAST CANCER METASTATIC
     Dosage: 1 HOUR INFUSION, IN 250 ML OF NORMAL SALINE
     Route: 065
  7. PYRIDOXINE [Concomitant]
     Indication: PROPHYLAXIS
     Dosage: AFTER LUNCH TO PREVENT PALMAR PLANTAR ERYTHRODYSESTHESIA
     Route: 048

REACTIONS (1)
  - HEPATOTOXICITY [None]
